FAERS Safety Report 9476567 (Version 2)
Quarter: 2013Q3

REPORT INFORMATION
  Report Type: Report from Study
  Country: PE (occurrence: PE)
  Receive Date: 20130826
  Receipt Date: 20130903
  Transmission Date: 20140515
  Serious: Yes (Life-Threatening, Other)
  Sender: FDA-Public Use
  Company Number: PE-GILEAD-2013-0081805

PATIENT
  Age: 47 Year
  Sex: Male

DRUGS (6)
  1. EMTRICITABINE/TENOFOVIR DISOPROXIL FUMARATE [Suspect]
     Indication: HIV INFECTION
     Dosage: 1 DF, QD
     Route: 048
     Dates: start: 20130219, end: 20130815
  2. EFAVIRENZ [Suspect]
     Indication: HIV INFECTION
     Dosage: 600 MG, QD
     Route: 048
     Dates: start: 20130219, end: 20130815
  3. ETHAMBUTOL /ISONIAZID/PYRAZINAMIDE/RIFAMPICIN [Suspect]
     Indication: HIV INFECTION
     Dosage: 1 DF, QD
     Route: 048
     Dates: start: 20130219, end: 20130415
  4. ISONIAZID W/RIFAMPICIN [Suspect]
     Indication: HIV INFECTION
     Dosage: 1 DF, QD
     Dates: start: 20130416, end: 20130805
  5. PYRIDOXINE [Concomitant]
     Indication: NEUROPATHY PERIPHERAL
     Dosage: UNK
     Route: 048
     Dates: end: 20130805
  6. COTRIMOXAZOLE [Concomitant]
     Indication: OPPORTUNISTIC INFECTION PROPHYLAXIS
     Dosage: UNK
     Dates: end: 20130815

REACTIONS (1)
  - Hypophosphataemia [Not Recovered/Not Resolved]
